FAERS Safety Report 23394015 (Version 1)
Quarter: 2024Q1

REPORT INFORMATION
  Report Type: Spontaneous
  Country: US (occurrence: US)
  Receive Date: 20240111
  Receipt Date: 20240111
  Transmission Date: 20240409
  Serious: No
  Sender: FDA-Public Use
  Company Number: US-BAUSCH-BL-2024-000451

PATIENT
  Sex: Female

DRUGS (1)
  1. RETIN-A MICRO [Suspect]
     Active Substance: TRETINOIN
     Indication: Product used for unknown indication
     Route: 065
     Dates: start: 2014

REACTIONS (2)
  - Application site pain [Unknown]
  - Application site irritation [Unknown]
